FAERS Safety Report 5125913-7 (Version None)
Quarter: 2006Q4

REPORT INFORMATION
  Report Type: 
  Country: None (occurrence: None)
  Receive Date: 20061012
  Receipt Date: 20061009
  Transmission Date: 20070319
  Serious: Yes (Hospitalization, Other)
  Sender: FDA-Public Use
  Company Number: GB-GLAXOSMITHKLINE-B0441724A

PATIENT
  Age: 50 Year
  Sex: Male
  Weight: 65 kg

DRUGS (7)
  1. FOSAMPRENAVIR [Suspect]
     Indication: DRUG USE FOR UNKNOWN INDICATION
     Dosage: 1400MG UNKNOWN
     Route: 048
     Dates: start: 20060604
  2. EMTRICITABINE [Suspect]
     Indication: DRUG USE FOR UNKNOWN INDICATION
     Dosage: 200MG UNKNOWN
     Route: 048
     Dates: start: 20060604
  3. RITONAVIR [Suspect]
     Indication: DRUG USE FOR UNKNOWN INDICATION
     Dosage: 200MG UNKNOWN
     Route: 048
     Dates: start: 20060604, end: 20060811
  4. TENOFOVIR DISOPROXIL FUMARATE [Suspect]
     Indication: DRUG USE FOR UNKNOWN INDICATION
     Dosage: 300MG UNKNOWN
     Route: 048
     Dates: start: 20060604
  5. CLARITHROMYCIN [Concomitant]
     Route: 065
     Dates: start: 20060427, end: 20060430
  6. CO-TRIMOXAZOLE [Concomitant]
     Dosage: 480MG UNKNOWN
     Route: 048
     Dates: start: 20060508, end: 20060529
  7. FLUCONAZOLE [Concomitant]
     Indication: CANDIDIASIS
     Dosage: 100MG UNKNOWN
     Route: 048

REACTIONS (4)
  - HYPERLACTACIDAEMIA [None]
  - MONOPARESIS [None]
  - MYOSITIS [None]
  - OEDEMA PERIPHERAL [None]
